FAERS Safety Report 19713680 (Version 2)
Quarter: 2021Q3

REPORT INFORMATION
  Report Type: Spontaneous
  Country: JP (occurrence: JP)
  Receive Date: 20210817
  Receipt Date: 20210908
  Transmission Date: 20211014
  Serious: Yes (Death, Other)
  Sender: FDA-Public Use
  Company Number: JP-SAKK-2021SA271050AA

PATIENT
  Age: 74 Year
  Sex: Male
  Weight: 56.3 kg

DRUGS (6)
  1. ABIRATERONE ACETATE. [Concomitant]
     Active Substance: ABIRATERONE ACETATE
     Indication: PROSTATE CANCER
     Dosage: UNK
     Route: 065
     Dates: start: 20200713
  2. JEVTANA [Suspect]
     Active Substance: CABAZITAXEL
     Indication: PROSTATE CANCER
     Dosage: 20 MG/M2
     Route: 041
     Dates: start: 20210705, end: 20210717
  3. G LASTA [Concomitant]
     Active Substance: PEGFILGRASTIM
     Indication: PROPHYLAXIS
     Dosage: 3.6 MG, 1X
     Route: 058
     Dates: start: 20210609
  4. JEVTANA [Suspect]
     Active Substance: CABAZITAXEL
     Dosage: 25 MG/M2
     Route: 041
     Dates: start: 20210608, end: 20210627
  5. G LASTA [Concomitant]
     Active Substance: PEGFILGRASTIM
     Dosage: 3.6 MG, 1X
     Route: 058
     Dates: start: 20210706
  6. DOCETAXEL. [Concomitant]
     Active Substance: DOCETAXEL
     Indication: PROSTATE CANCER
     Dosage: UNK
     Route: 065
     Dates: start: 20210104

REACTIONS (3)
  - Vomiting [Fatal]
  - Nausea [Fatal]
  - Drug-induced liver injury [Fatal]

NARRATIVE: CASE EVENT DATE: 20210716
